FAERS Safety Report 4332486-5 (Version None)
Quarter: 2004Q2

REPORT INFORMATION
  Report Type: 
  Country: None (occurrence: None)
  Receive Date: 20040401
  Receipt Date: 30040330
  Transmission Date: 20050107
  Serious: Yes (Death)
  Sender: FDA-Public Use
  Company Number: BE-JNJFOC-20040306599

PATIENT
  Age: 33 Year
  Sex: Male

DRUGS (1)
  1. CISAPRIDE (CISAPRIDE) [Suspect]
     Indication: IMPAIRED GASTRIC EMPTYING
     Dosage: 10 MG,  4 IN 1 DAY
     Route: 048
     Dates: start: 20030508, end: 20040203

REACTIONS (1)
  - SEPTIC SHOCK [None]
